FAERS Safety Report 8975237 (Version 1)
Quarter: 2012Q4

REPORT INFORMATION
  Report Type: 
  Country: US (occurrence: US)
  Receive Date: 20121219
  Receipt Date: 20121219
  Transmission Date: 20130627
  Serious: No
  Sender: FDA-Public Use
  Company Number: US-TARO-2012P1064690

PATIENT
  Sex: Male

DRUGS (1)
  1. FLUOROURACIL [Suspect]
     Dates: start: 20121102, end: 20121105

REACTIONS (2)
  - Dizziness [Recovering/Resolving]
  - Deafness [Recovering/Resolving]
